FAERS Safety Report 13268679 (Version 1)
Quarter: 2017Q1

REPORT INFORMATION
  Report Type: Other
  Country: CH (occurrence: CH)
  Receive Date: 20170224
  Receipt Date: 20170224
  Transmission Date: 20170428
  Serious: Yes (Other)
  Sender: FDA-Public Use
  Company Number: CH-ACTELION-A-CH2017-149817

PATIENT
  Age: 43 Year
  Sex: Male

DRUGS (3)
  1. VENTAVIS [Suspect]
     Active Substance: ILOPROST
     Indication: PULMONARY HYPERTENSION
     Route: 055
  2. SILDENAFIL. [Concomitant]
     Active Substance: SILDENAFIL
  3. BOSENTAN. [Suspect]
     Active Substance: BOSENTAN
     Indication: PULMONARY HYPERTENSION
     Route: 048

REACTIONS (2)
  - Pulmonary hypertension [Not Recovered/Not Resolved]
  - Drug ineffective [Unknown]
